FAERS Safety Report 11004711 (Version 4)
Quarter: 2015Q2

REPORT INFORMATION
  Report Type: Spontaneous
  Country: IL (occurrence: IL)
  Receive Date: 20150409
  Receipt Date: 20150603
  Transmission Date: 20150821
  Serious: Yes (Hospitalization, Other)
  Sender: FDA-Public Use
  Company Number: IL-PFIZER INC-2015094922

PATIENT
  Age: 78 Year
  Sex: Male

DRUGS (9)
  1. FUSID [Concomitant]
     Active Substance: FUROSEMIDE
     Dosage: UNK
  2. XATRAL [Concomitant]
     Active Substance: ALFUZOSIN
     Dosage: UNK
  3. SUTENT [Suspect]
     Active Substance: SUNITINIB MALATE
     Indication: RENAL CELL CARCINOMA
     Dosage: 50 MG, 1X/DAY
     Route: 048
     Dates: start: 20150301, end: 20150329
  4. CONTROLOC [Concomitant]
     Active Substance: PANTOPRAZOLE SODIUM
     Dosage: UNK
  5. RAMIPRIL. [Concomitant]
     Active Substance: RAMIPRIL
     Dosage: UNK
  6. CLONEX [Concomitant]
     Dosage: UNK
  7. INSULIN [Concomitant]
     Active Substance: INSULIN NOS
     Dosage: UNK
  8. CIPRALEX [Concomitant]
     Active Substance: ESCITALOPRAM OXALATE
     Dosage: UNK
  9. PLAVIX [Concomitant]
     Active Substance: CLOPIDOGREL BISULFATE
     Dosage: UNK

REACTIONS (20)
  - Pneumonia [Unknown]
  - Blood pressure increased [Unknown]
  - Cough [Recovered/Resolved]
  - Decreased appetite [Unknown]
  - Chest pain [Unknown]
  - Cardiac disorder [Unknown]
  - Dyspnoea [Unknown]
  - Diarrhoea [Recovered/Resolved]
  - Pulmonary embolism [Unknown]
  - Parosmia [Unknown]
  - Pulmonary oedema [Unknown]
  - Haemoptysis [Recovering/Resolving]
  - Blood thyroid stimulating hormone increased [Recovered/Resolved]
  - Dysgeusia [Unknown]
  - Ejection fraction decreased [Unknown]
  - Feeling abnormal [Not Recovered/Not Resolved]
  - Oropharyngeal pain [Recovering/Resolving]
  - Nausea [Unknown]
  - Yellow skin [Recovering/Resolving]
  - Asthenia [Recovering/Resolving]

NARRATIVE: CASE EVENT DATE: 20150328
